FAERS Safety Report 5009068-5 (Version None)
Quarter: 2006Q2

REPORT INFORMATION
  Report Type: 
  Country: None (occurrence: None)
  Receive Date: 20060519
  Receipt Date: 20060511
  Transmission Date: 20061013
  Serious: Yes (Hospitalization)
  Sender: FDA-Public Use
  Company Number: 2005BI017692

PATIENT
  Age: 58 Year
  Sex: Female
  Weight: 72.5755 kg

DRUGS (4)
  1. AVONEX [Suspect]
     Indication: MULTIPLE SCLEROSIS
     Dosage: 30 UG; QW; IM
     Route: 030
     Dates: start: 20000921
  2. FIBERCON [Concomitant]
  3. ASPIRIN [Concomitant]
  4. TOPROL-XL [Concomitant]

REACTIONS (20)
  - ABSCESS [None]
  - BLOOD POTASSIUM DECREASED [None]
  - BODY HEIGHT DECREASED [None]
  - COMA [None]
  - CYST [None]
  - DEPRESSION [None]
  - DYSPEPSIA [None]
  - GASTRIC DISORDER [None]
  - HYPERTENSION [None]
  - INTERVERTEBRAL DISC DISORDER [None]
  - INTRASPINAL ABSCESS [None]
  - IRON DEFICIENCY [None]
  - MEMORY IMPAIRMENT [None]
  - MONOPLEGIA [None]
  - MUSCLE SPASMS [None]
  - OVERDOSE [None]
  - SPINAL CORD DISORDER [None]
  - SPINAL INFECTION VIRAL [None]
  - VOMITING [None]
  - WEIGHT DECREASED [None]
